FAERS Safety Report 7811210 (Version 3)
Quarter: 2014Q1

REPORT INFORMATION
  Report Type: Spontaneous
  Country: US (occurrence: US)
  Receive Date: 20110214
  Receipt Date: 20140131
  Transmission Date: 20141002
  Serious: Yes (Hospitalization, Disabling)
  Sender: FDA-Public Use
  Company Number: US-ASTRAZENECA-2010SE48881

PATIENT
  Age: 44 Year
  Sex: Female
  Weight: 63.5 kg

DRUGS (18)
  1. NEXIUM [Suspect]
     Indication: GASTROOESOPHAGEAL REFLUX DISEASE
     Dosage: DAILY
     Route: 048
     Dates: end: 2011
  2. NEXIUM [Suspect]
     Indication: GASTROOESOPHAGEAL REFLUX DISEASE
     Route: 048
     Dates: start: 2005, end: 2014
  3. PROTONIX [Concomitant]
     Indication: DYSPEPSIA
  4. PROTONIX [Concomitant]
     Indication: GASTROOESOPHAGEAL REFLUX DISEASE
  5. TUMS [Concomitant]
     Dosage: AS NEEDED
  6. ROLAIDS [Concomitant]
     Dosage: AS NEEDED
  7. LYRICA [Concomitant]
     Indication: DEPRESSION
  8. LYRICA [Concomitant]
     Indication: FIBROMYALGIA
  9. DICLOFENAC [Concomitant]
     Indication: PAIN
  10. XANAX [Concomitant]
     Indication: ANXIETY
  11. MORPHINE [Concomitant]
     Indication: PAIN
     Dosage: 30 MG 3-4 TIMES A DAY
  12. MORPHINE [Concomitant]
     Indication: PAIN
  13. OXYCODONE [Concomitant]
     Indication: PAIN
     Dosage: 4 TIMES A DAY
  14. TRAZADONE [Concomitant]
     Indication: DEPRESSION
  15. TRAZADONE [Concomitant]
     Indication: SLEEP DISORDER
  16. NITROGLYCERIN [Concomitant]
     Dosage: AS NEEDED
  17. VITAMIN D [Concomitant]
  18. METOPROLOL [Concomitant]

REACTIONS (22)
  - Osteoarthritis [Unknown]
  - Fibromyalgia [Unknown]
  - Neuropathy peripheral [Unknown]
  - Mental disorder [Unknown]
  - General physical health deterioration [Unknown]
  - Hypotension [Unknown]
  - Loss of consciousness [Unknown]
  - Osteoporosis [Unknown]
  - Influenza [Unknown]
  - Dyspepsia [Unknown]
  - Upper limb fracture [Unknown]
  - Meniscus injury [Unknown]
  - Calcium deficiency [Unknown]
  - Arthritis [Unknown]
  - Cardiovascular disorder [Unknown]
  - Diabetes mellitus [Unknown]
  - Peripheral arterial occlusive disease [Unknown]
  - Rheumatoid arthritis [Unknown]
  - Vitamin D deficiency [Unknown]
  - Arthralgia [Unknown]
  - Depression [Unknown]
  - Drug dose omission [Unknown]
